FAERS Safety Report 10041377 (Version 1)
Quarter: 2014Q1

REPORT INFORMATION
  Report Type: Spontaneous
  Country: US (occurrence: US)
  Receive Date: 20140327
  Receipt Date: 20140327
  Transmission Date: 20141002
  Serious: Yes (Other)
  Sender: FDA-Public Use
  Company Number: US-PFIZER INC-2014085944

PATIENT
  Age: 6 Year
  Sex: Female
  Weight: 16.7 kg

DRUGS (1)
  1. METHYLPHENIDATE HYDROCHLORIDE [Suspect]
     Indication: ATTENTION DEFICIT/HYPERACTIVITY DISORDER
     Dosage: 10 MG/DAY

REACTIONS (2)
  - Grand mal convulsion [Recovered/Resolved]
  - Abnormal behaviour [Recovering/Resolving]
